FAERS Safety Report 7382478-7 (Version None)
Quarter: 2011Q1

REPORT INFORMATION
  Report Type: 
  Country: None (occurrence: None)
  Receive Date: 20110329
  Receipt Date: 20110316
  Transmission Date: 20110831
  Serious: Yes (Death, Hospitalization, Other)
  Sender: FDA-Public Use
  Company Number: IT-BAYER-2011-008317

PATIENT
  Sex: Male
  Weight: 60 kg

DRUGS (1)
  1. NEXAVAR [Suspect]
     Indication: HEPATIC NEOPLASM MALIGNANT NON-RESECTABLE
     Dosage: DAILY DOSE 800 MG
     Route: 048
     Dates: start: 20100202, end: 20100304

REACTIONS (10)
  - HEPATOMEGALY [None]
  - CHROMATURIA [None]
  - RENAL IMPAIRMENT [None]
  - JAUNDICE [None]
  - COMA [None]
  - DEATH [None]
  - ASTHENIA [None]
  - FATIGUE [None]
  - CARDIAC FAILURE CONGESTIVE [None]
  - LIVER INJURY [None]
